FAERS Safety Report 7850014-4 (Version None)
Quarter: 2011Q4

REPORT INFORMATION
  Report Type: 
  Country: None (occurrence: None)
  Receive Date: 20111025
  Receipt Date: 20111025
  Transmission Date: 20120403
  Serious: Yes (Other)
  Sender: FDA-Public Use
  Company Number: None

PATIENT
  Age: 29 Year
  Sex: Male
  Weight: 81.6475 kg

DRUGS (2)
  1. VENLAFAXINE HCL EXTENDED-RELEASE [Suspect]
     Indication: AUTISM
     Dosage: 150MG 1 Q DAY PO
     Route: 048
     Dates: start: 20100630, end: 20100704
  2. VENLAFAXINE HCL EXTENDED-RELEASE [Suspect]
     Indication: ATTENTION DEFICIT/HYPERACTIVITY DISORDER
     Dosage: 150MG 1 Q DAY PO
     Route: 048
     Dates: start: 20100630, end: 20100704

REACTIONS (6)
  - ABNORMAL BEHAVIOUR [None]
  - AGGRESSION [None]
  - PRODUCT SUBSTITUTION ISSUE [None]
  - DYSPHONIA [None]
  - PSYCHOMOTOR HYPERACTIVITY [None]
  - IRRITABILITY [None]
